FAERS Safety Report 22220847 (Version 1)
Quarter: 2023Q2

REPORT INFORMATION
  Report Type: Spontaneous
  Country: GB (occurrence: GB)
  Receive Date: 20230418
  Receipt Date: 20230418
  Transmission Date: 20230722
  Serious: Yes (Other)
  Sender: FDA-Public Use
  Company Number: GB-MHRA-MED-202303151625159980-DTSMQ

PATIENT
  Age: 16 Year
  Sex: Female
  Weight: 84.3 kg

DRUGS (3)
  1. SAXENDA [Suspect]
     Active Substance: LIRAGLUTIDE
     Indication: Weight control
     Dosage: 3ML
     Dates: start: 20221107, end: 20230120
  2. SAXENDA [Suspect]
     Active Substance: LIRAGLUTIDE
     Indication: Polycystic ovaries
  3. METFORMIN [Suspect]
     Active Substance: METFORMIN HYDROCHLORIDE
     Indication: Product used for unknown indication
     Dosage: 1000 MG, QD (2X500MG TWICE PER DAY)

REACTIONS (2)
  - Suicidal ideation [Recovered/Resolved]
  - Affective disorder [Unknown]

NARRATIVE: CASE EVENT DATE: 20221101
